FAERS Safety Report 22097606 (Version 5)
Quarter: 2023Q4

REPORT INFORMATION
  Report Type: Spontaneous
  Country: US (occurrence: US)
  Receive Date: 20230315
  Receipt Date: 20231006
  Transmission Date: 20240109
  Serious: No
  Sender: FDA-Public Use
  Company Number: US-PFIZER INC-PV202300017407

PATIENT
  Age: 58 Year
  Sex: Female

DRUGS (1)
  1. IBRANCE [Suspect]
     Active Substance: PALBOCICLIB
     Indication: Neoplasm malignant
     Dosage: ONCE DAILY FOR 21 DAYS THEN 7 DAYS OFF
     Route: 048
     Dates: start: 20230125

REACTIONS (5)
  - Illness [Unknown]
  - Memory impairment [Unknown]
  - Neoplasm progression [Unknown]
  - Bradyphrenia [Unknown]
  - Influenza [Unknown]

NARRATIVE: CASE EVENT DATE: 20230531
